FAERS Safety Report 16356566 (Version 1)
Quarter: 2019Q2

REPORT INFORMATION
  Report Type: Spontaneous
  Country: CO (occurrence: CO)
  Receive Date: 20190527
  Receipt Date: 20190527
  Transmission Date: 20190711
  Serious: Yes (Other)
  Sender: FDA-Public Use
  Company Number: CO-SA-2019SA131044

PATIENT
  Age: 80 Year
  Sex: Female

DRUGS (7)
  1. ACETAMINOPHEN. [Concomitant]
     Active Substance: ACETAMINOPHEN
  2. ALIZAPRIDE [Concomitant]
     Active Substance: ALIZAPRIDE
  3. CLEXANE [Suspect]
     Active Substance: ENOXAPARIN SODIUM
     Indication: THROMBOSIS PROPHYLAXIS
     Dosage: 40 MG, UNK
     Route: 058
     Dates: start: 20190325
  4. PREGABALIN. [Concomitant]
     Active Substance: PREGABALIN
  5. PREDNISOLONE. [Concomitant]
     Active Substance: PREDNISOLONE
  6. HYDROMORPHONE [Concomitant]
     Active Substance: HYDROMORPHONE
  7. LOVASTATIN. [Concomitant]
     Active Substance: LOVASTATIN

REACTIONS (5)
  - Paraparesis [Unknown]
  - Pulmonary embolism [Unknown]
  - Extradural haematoma [Recovered/Resolved]
  - Haemorrhage [Unknown]
  - Bladder sphincter atony [Unknown]

NARRATIVE: CASE EVENT DATE: 20190325
